FAERS Safety Report 4289018-X (Version None)
Quarter: 2004Q1

REPORT INFORMATION
  Report Type: 
  Country: None (occurrence: None)
  Receive Date: 20040206
  Receipt Date: 20040129
  Transmission Date: 20041129
  Serious: Yes (Disabling)
  Sender: FDA-Public Use
  Company Number: 04-000087

PATIENT
  Sex: Female

DRUGS (1)
  1. FEMHRT [Suspect]
     Dosage: ORAL
     Route: 048
     Dates: start: 20020801, end: 20020912

REACTIONS (3)
  - CARDIAC ANEURYSM [None]
  - CEREBRAL INFARCTION [None]
  - HEMIPARESIS [None]
